FAERS Safety Report 7425016-2 (Version None)
Quarter: 2011Q2

REPORT INFORMATION
  Report Type: 
  Country: None (occurrence: None)
  Receive Date: 20110419
  Receipt Date: 20110411
  Transmission Date: 20111010
  Serious: Yes (Hospitalization)
  Sender: FDA-Public Use
  Company Number: ES-BRISTOL-MYERS SQUIBB COMPANY-15680382

PATIENT
  Age: 53 Year
  Sex: Female

DRUGS (1)
  1. MITOMYCIN [Suspect]
     Indication: BLADDER CANCER
     Dosage: MITOMYCIN INJECTION
     Route: 043
     Dates: start: 20101123, end: 20101123

REACTIONS (4)
  - VOMITING [None]
  - PYREXIA [None]
  - CHILLS [None]
  - IRIDOCYCLITIS [None]
